FAERS Safety Report 5926882-X (Version None)
Quarter: 2008Q4

REPORT INFORMATION
  Report Type: 
  Country: None (occurrence: None)
  Receive Date: 20081017
  Receipt Date: 20081008
  Transmission Date: 20090506
  Serious: Yes (Other)
  Sender: FDA-Public Use
  Company Number: 2008BI024824

PATIENT
  Age: 57 Year
  Sex: Female

DRUGS (8)
  1. TYSABRI [Suspect]
     Indication: MULTIPLE SCLEROSIS
     Dosage: 300 MG; QM; IV
     Route: 042
     Dates: start: 20061012, end: 20080701
  2. ACTONEL [Concomitant]
  3. PROVIGIL [Concomitant]
  4. PROZAC [Concomitant]
  5. ZOCOR [Concomitant]
  6. TRIAMTEREN/HCTZ [Concomitant]
  7. CORTICOSTEROIDS (NOS) [Concomitant]
  8. AVONEX [Concomitant]

REACTIONS (1)
  - BREAST CANCER RECURRENT [None]
